FAERS Safety Report 23638804 (Version 3)
Quarter: 2024Q2

REPORT INFORMATION
  Report Type: Spontaneous
  Country: CN (occurrence: CN)
  Receive Date: 20240315
  Receipt Date: 20240429
  Transmission Date: 20240716
  Serious: Yes (Other)
  Sender: FDA-Public Use
  Company Number: CN-JNJFOC-20240331050

PATIENT
  Weight: 21 kg

DRUGS (2)
  1. TOPAMAX [Suspect]
     Active Substance: TOPIRAMATE
     Indication: Epilepsy
     Route: 048
     Dates: start: 2015
  2. TOPAMAX [Suspect]
     Active Substance: TOPIRAMATE
     Route: 048

REACTIONS (3)
  - Epilepsy [Unknown]
  - Suspected counterfeit product [Unknown]
  - Off label use [Unknown]
